FAERS Safety Report 21311287 (Version 1)
Quarter: 2022Q3

REPORT INFORMATION
  Report Type: Spontaneous
  Country: US (occurrence: None)
  Receive Date: 20220909
  Receipt Date: 20220909
  Transmission Date: 20221026
  Serious: No
  Sender: FDA-Public Use
  Company Number: US-ARIS GLOBAL-202202-0287

PATIENT
  Sex: Female

DRUGS (18)
  1. OXERVATE [Suspect]
     Active Substance: CENEGERMIN-BKBJ
     Indication: Ulcerative keratitis
     Route: 047
     Dates: start: 20220211
  2. OXERVATE [Suspect]
     Active Substance: CENEGERMIN-BKBJ
     Indication: Neurotrophic keratopathy
  3. OXERVATE [Suspect]
     Active Substance: CENEGERMIN-BKBJ
     Indication: Hypoaesthesia eye
  4. REFRESH CLASSIC [Concomitant]
     Active Substance: POLYVINYL ALCOHOL\POVIDONE
  5. DEXAMETHASONE [Concomitant]
     Active Substance: DEXAMETHASONE
  6. HYDROXYZINE [Concomitant]
     Active Substance: HYDROXYZINE HYDROCHLORIDE
  7. ASPIRIN [Concomitant]
     Active Substance: ASPIRIN
  8. ATIVAN [Concomitant]
     Active Substance: LORAZEPAM
  9. CEFAZOLIN SODIUM-DEXTROSE [Concomitant]
  10. OXYCODONE HYDROCHLORIDE [Concomitant]
     Active Substance: OXYCODONE HYDROCHLORIDE
  11. METFORMIN [Concomitant]
     Active Substance: METFORMIN HYDROCHLORIDE
  12. AFRIN [Concomitant]
     Active Substance: OXYMETAZOLINE
  13. CLARITIN [Concomitant]
     Active Substance: LORATADINE
  14. SIMVASTATIN [Concomitant]
     Active Substance: SIMVASTATIN
  15. GABAPENTIN [Concomitant]
     Active Substance: GABAPENTIN
  16. VITAMIN D [Concomitant]
     Active Substance: VITAMIN D NOS
  17. PREDNISOLONE [Concomitant]
     Active Substance: PREDNISOLONE
  18. RIFABUTIN [Concomitant]
     Active Substance: RIFABUTIN

REACTIONS (5)
  - Product storage error [Unknown]
  - Vision blurred [Unknown]
  - Eye pain [Unknown]
  - Asthenopia [Unknown]
  - Eye irritation [Unknown]
